FAERS Safety Report 4733121-4 (Version None)
Quarter: 2005Q3

REPORT INFORMATION
  Report Type: 
  Country: None (occurrence: None)
  Receive Date: 20050803
  Receipt Date: 20050727
  Transmission Date: 20060218
  Serious: Yes (Hospitalization, Disabling)
  Sender: FDA-Public Use
  Company Number: GB-MERCK-0507GBR00199

PATIENT
  Age: 67 Year
  Sex: Male

DRUGS (2)
  1. ZOCOR [Suspect]
     Indication: HYPERCHOLESTEROLAEMIA
     Route: 048
     Dates: start: 20050216, end: 20050411
  2. ASPIRIN [Concomitant]
     Indication: PROPHYLAXIS
     Route: 048
     Dates: start: 20030101

REACTIONS (8)
  - CYANOSIS [None]
  - DIZZINESS [None]
  - DRUG WITHDRAWAL SYNDROME [None]
  - FREQUENT BOWEL MOVEMENTS [None]
  - HYPERVIGILANCE [None]
  - INSOMNIA [None]
  - NIGHT BLINDNESS [None]
  - POLYURIA [None]
